FAERS Safety Report 11833881 (Version 4)
Quarter: 2016Q2

REPORT INFORMATION
  Report Type: Spontaneous
  Country: BR (occurrence: BR)
  Receive Date: 20151214
  Receipt Date: 20160401
  Transmission Date: 20160815
  Serious: Yes (Death, Hospitalization, Other)
  Sender: FDA-Public Use
  Company Number: BR-PFIZER INC-2015161385

PATIENT
  Age: 53 Year
  Sex: Male
  Weight: 30 kg

DRUGS (9)
  1. SUTENT [Suspect]
     Active Substance: SUNITINIB MALATE
     Dosage: 50 MG, CYCLIC (4 PER 2)
     Route: 048
     Dates: start: 20150418
  2. SUTENT [Suspect]
     Active Substance: SUNITINIB MALATE
     Dosage: UNK
     Dates: end: 20151124
  3. SUTENT [Suspect]
     Active Substance: SUNITINIB MALATE
     Dosage: 1 WEEK ON AND 1 WEEK OFF
     Route: 048
     Dates: start: 201506
  4. SUTENT [Suspect]
     Active Substance: SUNITINIB MALATE
     Indication: PANCREATIC NEUROENDOCRINE TUMOUR METASTATIC
     Dosage: 50 MG, CYCLIC (4 WEEKS ON/2 WEEK OFF)
     Route: 048
     Dates: start: 201502
  5. SUTENT [Suspect]
     Active Substance: SUNITINIB MALATE
     Dosage: 25 MG, CYCLIC
     Route: 048
     Dates: start: 20150410
  6. SUTENT [Suspect]
     Active Substance: SUNITINIB MALATE
     Dosage: 50 MG, CYCLIC (2 WEEKS ON/1 WEEK OFF)
     Route: 048
     Dates: start: 201504
  7. SUTENT [Suspect]
     Active Substance: SUNITINIB MALATE
     Dosage: 50 MG, ONCE A DAY, CYCLIC 2 PER 1
     Route: 048
     Dates: start: 20150726
  8. SUTENT [Suspect]
     Active Substance: SUNITINIB MALATE
     Dosage: 1 WEEK ON AND 1 WEEK OFF
     Route: 048
     Dates: start: 20150615
  9. IMOSEC [Concomitant]
     Active Substance: LOPERAMIDE
     Indication: DIARRHOEA
     Dosage: UNK

REACTIONS (8)
  - Pancreatic neuroendocrine tumour metastatic [Fatal]
  - Oral mucosal blistering [Recovered/Resolved]
  - Disease progression [Fatal]
  - Haemorrhage [Recovered/Resolved]
  - Blister [Recovered/Resolved]
  - Feeling hot [Recovered/Resolved]
  - Dyspnoea [Fatal]
  - Fatigue [Unknown]

NARRATIVE: CASE EVENT DATE: 2015
